FAERS Safety Report 7141129-7 (Version None)
Quarter: 2010Q4

REPORT INFORMATION
  Report Type: 
  Country: None (occurrence: None)
  Receive Date: 20101202
  Receipt Date: 20101202
  Transmission Date: 20110411
  Serious: Yes (Disabling)
  Sender: FDA-Public Use
  Company Number: None

PATIENT
  Age: 85 Year
  Sex: Female
  Weight: 77.1115 kg

DRUGS (2)
  1. PHENERGAN [Suspect]
  2. AMBIEN [Suspect]

REACTIONS (12)
  - ABASIA [None]
  - APHAGIA [None]
  - APHASIA [None]
  - CONDITION AGGRAVATED [None]
  - DYSSTASIA [None]
  - HALLUCINATION [None]
  - MEMORY IMPAIRMENT [None]
  - MYOCLONUS [None]
  - SOMNOLENCE [None]
  - TRANSIENT ISCHAEMIC ATTACK [None]
  - UNEVALUABLE EVENT [None]
  - VASCULAR DEMENTIA [None]
